APPROVED DRUG PRODUCT: DULOXETINE HYDROCHLORIDE
Active Ingredient: DULOXETINE HYDROCHLORIDE
Strength: EQ 20MG BASE
Dosage Form/Route: CAPSULE, DELAYED REL PELLETS;ORAL
Application: A207219 | Product #001
Applicant: YAOPHARMA CO LTD
Approved: Aug 16, 2019 | RLD: No | RS: No | Type: DISCN